FAERS Safety Report 4639978-X (Version None)
Quarter: 2005Q2

REPORT INFORMATION
  Report Type: 
  Country: None (occurrence: None)
  Receive Date: 20050415
  Receipt Date: 20050330
  Transmission Date: 20051028
  Serious: Yes (Death, Hospitalization, Other)
  Sender: FDA-Public Use
  Company Number: JP_050406271

PATIENT
  Age: 65 Year
  Sex: Male

DRUGS (3)
  1. PERMAX [Suspect]
  2. L-DOPA [Concomitant]
  3. BROMOCRIPTINE [Concomitant]

REACTIONS (10)
  - ATROPHY [None]
  - COGNITIVE DETERIORATION [None]
  - CONDITION AGGRAVATED [None]
  - DEMENTIA [None]
  - DRUG EFFECT DECREASED [None]
  - DYSPHAGIA [None]
  - GLIOSIS [None]
  - MULTIPLE SYSTEM ATROPHY [None]
  - PNEUMONIA ASPIRATION [None]
  - PROGRESSIVE SUPRANUCLEAR PALSY [None]
